FAERS Safety Report 4938475-1 (Version None)
Quarter: 2006Q1

REPORT INFORMATION
  Report Type: 
  Country: None (occurrence: None)
  Receive Date: 20060306
  Receipt Date: 20060217
  Transmission Date: 20060701
  Serious: Yes (Other)
  Sender: FDA-Public Use
  Company Number: US200511001365

PATIENT
  Sex: Female
  Weight: 72.6 kg

DRUGS (2)
  1. ZYPREXA [Suspect]
     Dosage: 20 MG
     Dates: start: 19980101
  2. FLUOXETINE (R-FLUOXETINE) (FLUOXETINE (R-FLUOXETINE) [Concomitant]

REACTIONS (4)
  - CEREBROVASCULAR ACCIDENT [None]
  - MYOCARDIAL INFARCTION [None]
  - PANCREATITIS [None]
  - WEIGHT INCREASED [None]
